FAERS Safety Report 23087067 (Version 2)
Quarter: 2023Q4

REPORT INFORMATION
  Report Type: Spontaneous
  Country: JP (occurrence: JP)
  Receive Date: 20231020
  Receipt Date: 20231103
  Transmission Date: 20240110
  Serious: Yes (Hospitalization, Other)
  Sender: FDA-Public Use
  Company Number: JP-AMGEN-JPNSP2023186130

PATIENT
  Sex: Female

DRUGS (1)
  1. EVENITY [Suspect]
     Active Substance: ROMOSOZUMAB-AQQG
     Indication: Osteoporosis
     Dosage: 210 MILLIGRAM, QMO
     Route: 058
     Dates: start: 20230911

REACTIONS (1)
  - Spinal fracture [Recovering/Resolving]

NARRATIVE: CASE EVENT DATE: 20231009
